FAERS Safety Report 7953349 (Version 2)
Quarter: 2013Q1

REPORT INFORMATION
  Report Type: Spontaneous
  Country: US (occurrence: None)
  Receive Date: 20110429
  Receipt Date: 20121015
  Transmission Date: 20140127
  Serious: Yes (Other)
  Sender: FDA-Public Use
  Company Number: 2011MA004131

PATIENT
  Sex: Female
  Weight: 41.73 kg

DRUGS (2)
  1. METOCLOPRAMIDE [Suspect]
     Indication: VOMITING
     Dates: start: 2000, end: 20010208
  2. METOCLOPRAMIDE [Suspect]
     Indication: GASTROOESOPHAGEAL REFLUX DISEASE
     Dates: start: 2000, end: 20010208

REACTIONS (12)
  - Tardive dyskinesia [None]
  - Dystonia [None]
  - Chorea [None]
  - Extrapyramidal disorder [None]
  - Economic problem [None]
  - Emotional disorder [None]
  - Dyskinesia [None]
  - Unevaluable event [None]
  - Vomiting [None]
  - Choking [None]
  - Hiatus hernia [None]
  - Gastrooesophageal reflux disease [None]
